FAERS Safety Report 25659494 (Version 1)
Quarter: 2025Q3

REPORT INFORMATION
  Report Type: Spontaneous
  Country: CN (occurrence: CN)
  Receive Date: 20250808
  Receipt Date: 20250808
  Transmission Date: 20251021
  Serious: Yes (Other)
  Sender: BEIGENE
  Company Number: CN-BEIGENE-BGN-2025-012839

PATIENT
  Age: 62 Year
  Weight: 60.5 kg

DRUGS (12)
  1. TISLELIZUMAB [Suspect]
     Active Substance: TISLELIZUMAB
     Indication: Nasal cavity cancer
  2. TISLELIZUMAB [Suspect]
     Active Substance: TISLELIZUMAB
  3. TISLELIZUMAB [Suspect]
     Active Substance: TISLELIZUMAB
     Route: 041
  4. TISLELIZUMAB [Suspect]
     Active Substance: TISLELIZUMAB
  5. TISLELIZUMAB [Suspect]
     Active Substance: TISLELIZUMAB
     Route: 041
  6. TISLELIZUMAB [Suspect]
     Active Substance: TISLELIZUMAB
  7. CISPLATIN [Concomitant]
     Active Substance: CISPLATIN
     Indication: Nasal cavity cancer
  8. CISPLATIN [Concomitant]
     Active Substance: CISPLATIN
  9. CISPLATIN [Concomitant]
     Active Substance: CISPLATIN
     Route: 041
  10. PACLITAXEL [Concomitant]
     Active Substance: PACLITAXEL
     Indication: Nasal cavity cancer
  11. PACLITAXEL [Concomitant]
     Active Substance: PACLITAXEL
  12. PACLITAXEL [Concomitant]
     Active Substance: PACLITAXEL
     Route: 041

REACTIONS (1)
  - Agranulocytosis [Recovering/Resolving]
